FAERS Safety Report 6177653-3 (Version None)
Quarter: 2009Q2

REPORT INFORMATION
  Report Type: 
  Country: None (occurrence: None)
  Receive Date: 20090504
  Receipt Date: 20081211
  Transmission Date: 20091009
  Serious: No
  Sender: FDA-Public Use
  Company Number: US-ALEXION-A200800410

PATIENT
  Sex: Male

DRUGS (11)
  1. SOLIRIS [Suspect]
     Indication: PAROXYSMAL NOCTURNAL HAEMOGLOBINURIA
     Dosage: 600 MG, UNK
     Route: 042
     Dates: start: 20070502, end: 20070501
  2. SOLIRIS [Suspect]
     Dosage: 900 MG, Q 12 TO 14 DAYS
     Route: 042
     Dates: start: 20070530
  3. METHADONE [Concomitant]
     Dosage: 20 MG, TID
     Route: 048
  4. FOLATE [Concomitant]
     Dosage: 3 MG, QD
     Route: 048
  5. CYMBALTA [Concomitant]
     Dosage: 60 MG, QD
     Route: 048
  6. SEROQUEL [Concomitant]
     Dosage: 50 MG, QD
     Route: 048
  7. FRAGMIN                            /01708302/ [Concomitant]
     Dosage: 10000 UT, QD
     Route: 048
  8. ADVAIR HFA [Concomitant]
     Dosage: 350/50, UNK
     Route: 048
  9. COMBIVENT                          /01033501/ [Concomitant]
     Dosage: UNK
  10. SPIRIVA [Concomitant]
     Dosage: UNK
     Route: 048
  11. TEMAZEPAM [Concomitant]
     Dosage: 1 MG, QD
     Route: 048

REACTIONS (2)
  - HEADACHE [None]
  - MIGRAINE [None]
